FAERS Safety Report 19950512 (Version 2)
Quarter: 2021Q4

REPORT INFORMATION
  Report Type: Report from Study
  Country: RO (occurrence: RO)
  Receive Date: 20211013
  Receipt Date: 20211212
  Transmission Date: 20220303
  Serious: Yes (Other)
  Sender: FDA-Public Use
  Company Number: RO-ABBVIE-21K-135-4116180-00

PATIENT
  Age: 34 Year
  Sex: Male

DRUGS (2)
  1. HUMIRA [Suspect]
     Active Substance: ADALIMUMAB
     Indication: Ankylosing spondylitis
     Route: 058
     Dates: start: 20190115, end: 20210916
  2. HUMIRA [Suspect]
     Active Substance: ADALIMUMAB
     Route: 058
     Dates: start: 20211021

REACTIONS (7)
  - Respiratory failure [Recovered/Resolved]
  - Red blood cell sedimentation rate abnormal [Not Recovered/Not Resolved]
  - Product dose omission issue [Recovered/Resolved]
  - C-reactive protein abnormal [Not Recovered/Not Resolved]
  - COVID-19 [Recovered/Resolved]
  - Back pain [Recovered/Resolved]
  - Faeces soft [Recovered/Resolved]

NARRATIVE: CASE EVENT DATE: 20210929
